FAERS Safety Report 9593033 (Version 1)
Quarter: 2013Q4

REPORT INFORMATION
  Report Type: Spontaneous
  Country: US (occurrence: None)
  Receive Date: 20131002
  Receipt Date: 20131002
  Transmission Date: 20140711
  Serious: Yes (Death)
  Sender: FDA-Public Use
  Company Number: 1309-1233

PATIENT
  Age: 84 Year
  Sex: Female

DRUGS (1)
  1. EYLEA [Suspect]

REACTIONS (1)
  - Death [None]
